FAERS Safety Report 7656713-1 (Version None)
Quarter: 2011Q3

REPORT INFORMATION
  Report Type: 
  Country: None (occurrence: None)
  Receive Date: 20110804
  Receipt Date: 20110801
  Transmission Date: 20111222
  Serious: Yes (Death)
  Sender: FDA-Public Use
  Company Number: CN-PFIZER INC-2011175213

PATIENT
  Sex: Male

DRUGS (1)
  1. CEFOBID [Suspect]
     Indication: BRONCHITIS

REACTIONS (1)
  - ANAPHYLACTIC SHOCK [None]
